FAERS Safety Report 18348493 (Version 1)
Quarter: 2020Q4

REPORT INFORMATION
  Report Type: Spontaneous
  Country: US (occurrence: US)
  Receive Date: 20201005
  Receipt Date: 20201005
  Transmission Date: 20210114
  Serious: No
  Sender: FDA-Public Use
  Company Number: None

PATIENT
  Age: 34 Year
  Sex: Female
  Weight: 68.04 kg

DRUGS (3)
  1. BIOTIN [Concomitant]
     Active Substance: BIOTIN
  2. MAGNESIUM [Concomitant]
     Active Substance: MAGNESIUM
  3. MIRENA [Suspect]
     Active Substance: LEVONORGESTREL
     Dates: start: 20180827, end: 20200902

REACTIONS (8)
  - Loss of consciousness [None]
  - Vomiting [None]
  - Anxiety [None]
  - Weight increased [None]
  - Medical device pain [None]
  - Fatigue [None]
  - Dyspareunia [None]
  - Feeling abnormal [None]

NARRATIVE: CASE EVENT DATE: 20180827
